FAERS Safety Report 8297099-1 (Version None)
Quarter: 2012Q2

REPORT INFORMATION
  Report Type: 
  Country: None (occurrence: None)
  Receive Date: 20120416
  Receipt Date: 20120406
  Transmission Date: 20120825
  Serious: Yes (Other)
  Sender: FDA-Public Use
  Company Number: DSA_54642_2012

PATIENT
  Sex: Male

DRUGS (1)
  1. XENAZINE [Suspect]
     Indication: HUNTINGTON'S DISEASE
     Dosage: 12.5 MG TID ORAL
     Route: 048
     Dates: start: 20111027

REACTIONS (4)
  - JOINT HYPEREXTENSION [None]
  - PAIN IN EXTREMITY [None]
  - ILL-DEFINED DISORDER [None]
  - EMOTIONAL DISORDER [None]
